FAERS Safety Report 12375417 (Version 2)
Quarter: 2016Q2

REPORT INFORMATION
  Report Type: Spontaneous
  Country: IT (occurrence: IT)
  Receive Date: 20160517
  Receipt Date: 20160527
  Transmission Date: 20160815
  Serious: Yes (Other)
  Sender: FDA-Public Use
  Company Number: IT-ACTAVIS-2016-10102

PATIENT
  Age: 78 Year
  Sex: Female

DRUGS (3)
  1. EPIRUBICIN (UNKNOWN) [Suspect]
     Active Substance: EPIRUBICIN
     Indication: OVARIAN CANCER
     Dosage: 60 MG/M2, CYCLICAL
     Route: 065
     Dates: start: 200811
  2. CYCLOPHOSPHAMIDE. [Suspect]
     Active Substance: CYCLOPHOSPHAMIDE
     Indication: OVARIAN CANCER
     Dosage: 600 MG/M2, CYCLICAL
     Route: 065
     Dates: start: 200811
  3. CISPLATIN (UNKNOWN) [Suspect]
     Active Substance: CISPLATIN
     Indication: OVARIAN CANCER
     Dosage: 50 MG/M2, CYCLICAL
     Route: 065
     Dates: start: 200811

REACTIONS (6)
  - Anaemia [Recovering/Resolving]
  - Thrombocytopenia [Recovering/Resolving]
  - Gastrointestinal toxicity [Recovering/Resolving]
  - Haematotoxicity [Recovering/Resolving]
  - Leukopenia [Recovering/Resolving]
  - Mucosal inflammation [Recovering/Resolving]

NARRATIVE: CASE EVENT DATE: 200812
